FAERS Safety Report 7069072-2 (Version None)
Quarter: 2010Q4

REPORT INFORMATION
  Report Type: 
  Country: None (occurrence: None)
  Receive Date: 20101028
  Receipt Date: 20101020
  Transmission Date: 20110411
  Serious: Yes (Other)
  Sender: FDA-Public Use
  Company Number: B0679802A

PATIENT
  Age: 43 Year
  Sex: Female
  Weight: 82 kg

DRUGS (2)
  1. ORLISTAT [Suspect]
     Dosage: 3CAP PER DAY
     Route: 065
     Dates: start: 20100920, end: 20100924
  2. DIANE [Concomitant]

REACTIONS (4)
  - ABDOMINAL PAIN [None]
  - DIARRHOEA [None]
  - HAEMATOCHEZIA [None]
  - NAUSEA [None]
